FAERS Safety Report 6296256-3 (Version None)
Quarter: 2009Q3

REPORT INFORMATION
  Report Type: 
  Country: None (occurrence: None)
  Receive Date: 20090804
  Receipt Date: 20090727
  Transmission Date: 20100115
  Serious: Yes (Other)
  Sender: FDA-Public Use
  Company Number: US-ASTRAZENECA-2009UW21358

PATIENT
  Sex: Male

DRUGS (1)
  1. NEXIUM [Suspect]
     Indication: OESOPHAGEAL DYSPLASIA
     Route: 048

REACTIONS (4)
  - ABDOMINAL OPERATION [None]
  - ANAEMIA [None]
  - CONTUSION [None]
  - SKIN ATROPHY [None]
